FAERS Safety Report 22138034 (Version 1)
Quarter: 2023Q1

REPORT INFORMATION
  Report Type: Spontaneous
  Country: DE (occurrence: DE)
  Receive Date: 20230325
  Receipt Date: 20230325
  Transmission Date: 20230418
  Serious: Yes (Hospitalization, Other)
  Sender: FDA-Public Use
  Company Number: DE-002147023-NVSC2023DE065265

PATIENT
  Sex: Female

DRUGS (1)
  1. COSENTYX [Suspect]
     Active Substance: SECUKINUMAB
     Indication: Psoriatic arthropathy
     Dosage: 300 MG, QMO
     Route: 065
     Dates: end: 202210

REACTIONS (5)
  - Gastrointestinal disorder [Unknown]
  - Diarrhoea [Unknown]
  - Gastric cancer [Unknown]
  - Hepatic mass [Unknown]
  - Skin disorder [Unknown]

NARRATIVE: CASE EVENT DATE: 20220901
